FAERS Safety Report 7772669-5 (Version None)
Quarter: 2011Q3

REPORT INFORMATION
  Report Type: 
  Country: None (occurrence: None)
  Receive Date: 20110922
  Receipt Date: 20110106
  Transmission Date: 20111222
  Serious: No
  Sender: FDA-Public Use
  Company Number: US-ASTRAZENECA-2011SE01034

PATIENT
  Age: 582 Month
  Sex: Male

DRUGS (6)
  1. ATENOLOL [Concomitant]
  2. XANAX [Concomitant]
  3. SEROQUEL [Suspect]
     Route: 048
     Dates: start: 20100901
  4. KLONOPIN [Concomitant]
  5. SEROQUEL [Suspect]
     Indication: SLEEP DISORDER
     Route: 048
     Dates: start: 20100901
  6. LISINOPRIL [Concomitant]

REACTIONS (4)
  - HYPOAESTHESIA [None]
  - DRUG DOSE OMISSION [None]
  - HUNGER [None]
  - WEIGHT INCREASED [None]
